FAERS Safety Report 12616904 (Version 1)
Quarter: 2016Q3

REPORT INFORMATION
  Report Type: Spontaneous
  Country: GB (occurrence: GB)
  Receive Date: 20160802
  Receipt Date: 20160802
  Transmission Date: 20161109
  Serious: Yes (Other)
  Sender: FDA-Public Use
  Company Number: GB-LUPIN PHARMACEUTICALS INC.-2016-00454

PATIENT
  Sex: Male

DRUGS (3)
  1. LEVETIRACETAM-LUPIN 500 MG FILM-COATED TABLETS [Suspect]
     Active Substance: LEVETIRACETAM
     Dosage: 250MG IN THE MORNING AND 500MG IN THE EVENING
     Route: 048
  2. LEVETIRACETAM-LUPIN 500 MG FILM-COATED TABLETS [Suspect]
     Active Substance: LEVETIRACETAM
     Dosage: 250MG IN THE MORNING AND 250MG IN THE EVENING
     Route: 048
  3. LEVETIRACETAM-LUPIN 500 MG FILM-COATED TABLETS [Suspect]
     Active Substance: LEVETIRACETAM
     Indication: SEIZURE
     Route: 048

REACTIONS (1)
  - Seizure [Unknown]
